FAERS Safety Report 25255480 (Version 1)
Quarter: 2025Q2

REPORT INFORMATION
  Report Type: Spontaneous
  Country: QA (occurrence: QA)
  Receive Date: 20250430
  Receipt Date: 20250430
  Transmission Date: 20250716
  Serious: Yes (Life-Threatening, Hospitalization)
  Sender: MYLAN
  Company Number: QA-MYLANLABS-2025M1036959

PATIENT
  Age: 50 Year
  Sex: Female

DRUGS (16)
  1. POTASSIUM [Suspect]
     Active Substance: POTASSIUM
     Indication: Hyperglycaemic hyperosmolar nonketotic syndrome
     Dosage: UNK UNK, Q6H, OVER 6 HOURS
  2. POTASSIUM [Suspect]
     Active Substance: POTASSIUM
     Dosage: UNK UNK, Q6H, OVER 6 HOURS
     Route: 065
  3. POTASSIUM [Suspect]
     Active Substance: POTASSIUM
     Dosage: UNK UNK, Q6H, OVER 6 HOURS
     Route: 065
  4. POTASSIUM [Suspect]
     Active Substance: POTASSIUM
     Dosage: UNK UNK, Q6H, OVER 6 HOURS
  5. SALINE [Suspect]
     Active Substance: SODIUM CHLORIDE
     Indication: Hyperglycaemic hyperosmolar nonketotic syndrome
  6. SALINE [Suspect]
     Active Substance: SODIUM CHLORIDE
     Route: 065
  7. SALINE [Suspect]
     Active Substance: SODIUM CHLORIDE
     Route: 065
  8. SALINE [Suspect]
     Active Substance: SODIUM CHLORIDE
  9. INSULIN NOS [Suspect]
     Active Substance: INSULIN NOS
     Indication: Hyperglycaemic hyperosmolar nonketotic syndrome
     Dosage: UNK, Q6H, OVER 6 HOURS
  10. INSULIN NOS [Suspect]
     Active Substance: INSULIN NOS
     Dosage: UNK, Q6H, OVER 6 HOURS
     Route: 065
  11. INSULIN NOS [Suspect]
     Active Substance: INSULIN NOS
     Dosage: UNK, Q6H, OVER 6 HOURS
     Route: 065
  12. INSULIN NOS [Suspect]
     Active Substance: INSULIN NOS
     Dosage: UNK, Q6H, OVER 6 HOURS
  13. DALTEPARIN [Suspect]
     Active Substance: DALTEPARIN
     Indication: Thrombosis prophylaxis
     Dosage: 5000 INTERNATIONAL UNIT, QD
  14. DALTEPARIN [Suspect]
     Active Substance: DALTEPARIN
     Dosage: 5000 INTERNATIONAL UNIT, QD
     Route: 058
  15. DALTEPARIN [Suspect]
     Active Substance: DALTEPARIN
     Dosage: 5000 INTERNATIONAL UNIT, QD
     Route: 058
  16. DALTEPARIN [Suspect]
     Active Substance: DALTEPARIN
     Dosage: 5000 INTERNATIONAL UNIT, QD

REACTIONS (1)
  - Drug ineffective [Unknown]
